FAERS Safety Report 25406361 (Version 1)
Quarter: 2025Q2

REPORT INFORMATION
  Report Type: Spontaneous
  Country: US (occurrence: US)
  Receive Date: 20250606
  Receipt Date: 20250606
  Transmission Date: 20250716
  Serious: No
  Sender: LUNDBECK
  Company Number: US-LUNDBECK-DKLU4014993

PATIENT
  Sex: Female

DRUGS (1)
  1. VYEPTI [Suspect]
     Active Substance: EPTINEZUMAB-JJMR
     Indication: Migraine
     Route: 041
     Dates: start: 20250520, end: 20250520

REACTIONS (3)
  - Dizziness [Unknown]
  - Hypotension [Unknown]
  - Nervousness [Unknown]

NARRATIVE: CASE EVENT DATE: 20250520
